FAERS Safety Report 9531409 (Version 1)
Quarter: 2013Q3

REPORT INFORMATION
  Report Type: Spontaneous
  Country: IN (occurrence: None)
  Receive Date: 20130916
  Receipt Date: 20130916
  Transmission Date: 20140515
  Serious: Yes (Other)
  Sender: FDA-Public Use
  Company Number: IN-DEXPHARM-20130594

PATIENT
  Age: 60 Year
  Sex: Male

DRUGS (1)
  1. CHLORHEXIDINE [Suspect]

REACTIONS (3)
  - Parotid gland enlargement [None]
  - Multi-organ failure [None]
  - Mumps [None]
